FAERS Safety Report 11201795 (Version 1)
Quarter: 2015Q2

REPORT INFORMATION
  Report Type: Spontaneous
  Country: US (occurrence: US)
  Receive Date: 20150619
  Receipt Date: 20150619
  Transmission Date: 20150821
  Serious: Yes (Death)
  Sender: FDA-Public Use
  Company Number: US-HOSPIRA-2899998

PATIENT
  Age: 57 Year
  Sex: Female
  Weight: 108.64 kg

DRUGS (3)
  1. DEPO-MEDROL [Suspect]
     Active Substance: METHYLPREDNISOLONE ACETATE
     Indication: CHRONIC OBSTRUCTIVE PULMONARY DISEASE
     Dosage: ONCE
     Route: 030
     Dates: start: 20131105, end: 20131105
  2. LIDOCAINE HYDROCHLORIDE. [Suspect]
     Active Substance: LIDOCAINE HYDROCHLORIDE
     Indication: MEDICATION DILUTION
     Dosage: ONCE
     Route: 030
     Dates: start: 20131105, end: 20131105
  3. CEFTRIAXONE SODIUM. [Suspect]
     Active Substance: CEFTRIAXONE SODIUM
     Indication: CHRONIC OBSTRUCTIVE PULMONARY DISEASE
     Dosage: ONCE
     Route: 030
     Dates: start: 20131105, end: 20131105

REACTIONS (7)
  - Respiratory rate increased [Fatal]
  - Generalised oedema [Fatal]
  - Chest pain [Fatal]
  - Hypersensitivity [Fatal]
  - Dyspnoea [Fatal]
  - Obstructive airways disorder [Fatal]
  - Respiratory tract oedema [Fatal]

NARRATIVE: CASE EVENT DATE: 20131105
